FAERS Safety Report 6472064-5 (Version None)
Quarter: 2009Q4

REPORT INFORMATION
  Report Type: 
  Country: None (occurrence: None)
  Receive Date: 20091203
  Receipt Date: 20080710
  Transmission Date: 20100525
  Serious: Yes (Hospitalization, Other)
  Sender: FDA-Public Use
  Company Number: FR-ELI_LILLY_AND_COMPANY-FR200804003644

PATIENT
  Age: 80 Year
  Sex: Female
  Weight: 78 kg

DRUGS (5)
  1. FORTEO [Suspect]
     Indication: OSTEOPOROSIS
     Dosage: 20 UG, DAILY (1/D)
     Route: 058
     Dates: start: 20070730, end: 20080309
  2. FORTEO [Suspect]
     Dosage: 20 UG, DAILY (1/D)
     Route: 058
     Dates: start: 20080312
  3. PARIET [Concomitant]
     Indication: HIATUS HERNIA
     Dosage: 1 D/F, DAILY (1/D)
     Route: 048
  4. DITROPAN [Concomitant]
     Dosage: 2 D/F, 1 TAB IN THE MORNING AND THE NIGHT
     Route: 048
  5. ENDOTELON                          /00811401/ [Concomitant]
     Dosage: 2 D/F, 1 IN THE MORNING AND THE NIGHT
     Route: 048

REACTIONS (3)
  - DEEP VEIN THROMBOSIS [None]
  - ESCHERICHIA INFECTION [None]
  - PYELONEPHRITIS [None]
